FAERS Safety Report 7448105-5 (Version None)
Quarter: 2011Q2

REPORT INFORMATION
  Report Type: 
  Country: None (occurrence: None)
  Receive Date: 20110429
  Receipt Date: 20100923
  Transmission Date: 20111010
  Serious: No
  Sender: FDA-Public Use
  Company Number: US-ASTRAZENECA-2008UW27974

PATIENT
  Age: 49 Year
  Sex: Female

DRUGS (2)
  1. NEXIUM [Suspect]
     Route: 048
     Dates: start: 20080608, end: 20081021
  2. PRILOSEC OTC [Suspect]
     Route: 048
     Dates: start: 20080608, end: 20081021

REACTIONS (10)
  - PAIN [None]
  - CHEST PAIN [None]
  - GASTRIC HAEMORRHAGE [None]
  - DISCOMFORT [None]
  - ABDOMINAL DISCOMFORT [None]
  - HEADACHE [None]
  - MALAISE [None]
  - DRUG DOSE OMISSION [None]
  - STRESS [None]
  - DRUG INEFFECTIVE [None]
